FAERS Safety Report 5675256-8 (Version None)
Quarter: 2008Q1

REPORT INFORMATION
  Report Type: 
  Country: None (occurrence: None)
  Receive Date: 20080320
  Receipt Date: 20080310
  Transmission Date: 20080703
  Serious: Yes (Hospitalization)
  Sender: FDA-Public Use
  Company Number: CA-ELI_LILLY_AND_COMPANY-CA200711006276

PATIENT
  Age: 79 Year
  Sex: Female

DRUGS (13)
  1. FORTEO [Suspect]
     Indication: OSTEOPOROSIS
     Dosage: 20 UG, DAILY (1/D)
     Route: 058
     Dates: start: 20070827, end: 20071113
  2. CALCIUM [Concomitant]
     Dosage: UNK, UNK
  3. VITAMIN B-12 [Concomitant]
     Dosage: UNK, UNK
  4. ASPIRIN [Concomitant]
     Dosage: 81 MG, UNK
  5. LOSEC I.V. [Concomitant]
     Dosage: 20 MG, DAILY (1/D)
  6. NORVASC [Concomitant]
     Dosage: 10 MG, DAILY (1/D)
  7. HYDROCHLOROTHIAZIDE [Concomitant]
     Dosage: 25 MG, DAILY (1/D)
  8. PREDNISONE TAB [Concomitant]
     Dosage: UNK, UNK
  9. CELEBREX [Concomitant]
     Dosage: UNK, UNK
  10. BISOPROLOL FUMARATE [Concomitant]
     Dosage: 5 MG, DAILY (1/D)
  11. DIGOXIN [Concomitant]
     Dosage: 10 MG, DAILY (1/D)
  12. LAMIVUDINE [Concomitant]
  13. ELTROXIN [Concomitant]
     Dosage: 0.112 MG, DAILY (1/D)

REACTIONS (3)
  - DIVERTICULITIS [None]
  - IMMUNOSUPPRESSION [None]
  - PNEUMONIA [None]
